FAERS Safety Report 8092523-1 (Version None)
Quarter: 2012Q1

REPORT INFORMATION
  Report Type: 
  Country: None (occurrence: None)
  Receive Date: 20120128
  Receipt Date: 20110827
  Transmission Date: 20120608
  Serious: No
  Sender: FDA-Public Use
  Company Number: US-ABBOTT-11P-163-0849821-00

PATIENT
  Age: 55 Year
  Sex: Female

DRUGS (26)
  1. DEXILANT [Concomitant]
     Indication: GASTROOESOPHAGEAL REFLUX DISEASE
     Dosage: AT NIGHT
  2. ZANAFLEX [Concomitant]
     Indication: MUSCLE RELAXANT THERAPY
  3. CALCIUM PLUS D [Concomitant]
     Indication: MINERAL SUPPLEMENTATION
  4. PROAIR HFA [Concomitant]
     Indication: CHRONIC OBSTRUCTIVE PULMONARY DISEASE
  5. LAMICTAL [Concomitant]
     Indication: HEADACHE
     Dosage: AT NIGHT
  6. VERAMIST NASAL SPRAY [Concomitant]
     Indication: HYPERSENSITIVITY
  7. FEMARA [Concomitant]
     Indication: BREAST CANCER
  8. AMITRIPTYLINE HCL [Concomitant]
     Indication: MIGRAINE
     Dosage: AT NIGHT
  9. TRADJENTA [Concomitant]
     Indication: DIABETES MELLITUS
  10. BUTORPHANOL TARATRATE [Concomitant]
     Indication: MIGRAINE
     Dosage: AS LAST RESORT
     Route: 045
  11. ROZEREM [Concomitant]
     Indication: INSOMNIA
     Dosage: AT NIGHT
  12. COMPAZINE [Concomitant]
     Indication: NAUSEA
  13. CARDIZEM [Concomitant]
     Indication: BLOOD PRESSURE
  14. LYRICA [Concomitant]
     Indication: FIBROMYALGIA
  15. ENTOCORT EC [Concomitant]
     Indication: CROHN'S DISEASE
     Dosage: IN THE MORNING
  16. HYDROCODONE BITARTRATE [Concomitant]
     Indication: SPINAL OSTEOARTHRITIS
     Dosage: NOT REPORTED
  17. ZOLOFT [Concomitant]
     Indication: MIGRAINE
     Dosage: ONE
  18. ICAP [Concomitant]
     Indication: SUPPLEMENTATION THERAPY
  19. ICAP [Concomitant]
     Indication: MACULAR DEGENERATION
  20. VITAMIN E [Concomitant]
     Indication: NIGHT SWEATS
  21. HUMIRA [Suspect]
     Indication: CROHN'S DISEASE
     Dates: start: 20110701
  22. FOSAMAX [Concomitant]
     Indication: OSTEOPOROSIS
  23. SPIRONOLACTONE [Concomitant]
     Indication: DIURETIC THERAPY
     Dosage: AT NIGHT  AT NIGHT
  24. CRESTOR [Concomitant]
     Indication: BLOOD CHOLESTEROL INCREASED
  25. LOMOTIL [Concomitant]
     Indication: DIARRHOEA
  26. CARDIZEM [Concomitant]
     Indication: HEART RATE IRREGULAR

REACTIONS (1)
  - WRONG TECHNIQUE IN DRUG USAGE PROCESS [None]
